FAERS Safety Report 22159913 (Version 1)
Quarter: 2023Q1

REPORT INFORMATION
  Report Type: Spontaneous
  Country: GR (occurrence: GR)
  Receive Date: 20230331
  Receipt Date: 20230331
  Transmission Date: 20230418
  Serious: Yes (Hospitalization, Other)
  Sender: FDA-Public Use
  Company Number: GR-AMGEN-GRCSP2023050411

PATIENT
  Age: 65 Year
  Sex: Male

DRUGS (1)
  1. ADALIMUMAB [Suspect]
     Active Substance: ADALIMUMAB
     Indication: Psoriasis
     Dosage: UNK
     Route: 065

REACTIONS (6)
  - Haemophagocytic lymphohistiocytosis [Recovering/Resolving]
  - Mycobacterium avium complex infection [Recovering/Resolving]
  - Ascites [Recovering/Resolving]
  - Pancytopenia [Recovering/Resolving]
  - Meningoencephalitis bacterial [Recovering/Resolving]
  - Atypical mycobacterial infection [Recovering/Resolving]
